FAERS Safety Report 20828984 (Version 2)
Quarter: 2022Q2

REPORT INFORMATION
  Report Type: Report from Study
  Country: BR (occurrence: BR)
  Receive Date: 20220513
  Receipt Date: 20220530
  Transmission Date: 20220721
  Serious: Yes (Other)
  Sender: FDA-Public Use
  Company Number: BR-TAKEDA-2022TUS006040

PATIENT
  Age: 61 Year
  Sex: Female
  Weight: 52 kg

DRUGS (2)
  1. HUMAN IMMUNOGLOBULIN G\HYALURONIDASE RECOMBINANT HUMAN [Suspect]
     Active Substance: HUMAN IMMUNOGLOBULIN G\HYALURONIDASE RECOMBINANT HUMAN
     Indication: Primary immunodeficiency syndrome
     Dosage: 300 MILLILITER
     Route: 058
     Dates: start: 202103
  2. HUMAN IMMUNOGLOBULIN G [Suspect]
     Active Substance: HUMAN IMMUNOGLOBULIN G
     Indication: Product used for unknown indication
     Route: 042

REACTIONS (21)
  - Pneumonia [Unknown]
  - Arthritis [Recovered/Resolved]
  - Fibromyalgia [Recovered/Resolved]
  - Abdominal discomfort [Unknown]
  - Sneezing [Unknown]
  - Pain [Unknown]
  - Therapeutic product effect delayed [Unknown]
  - Application site haematoma [Unknown]
  - Fear [Unknown]
  - Cough [Unknown]
  - Oedema [Unknown]
  - Migraine [Unknown]
  - Blood pressure increased [Recovered/Resolved]
  - Malaise [Recovered/Resolved]
  - Influenza [Unknown]
  - Influenza like illness [Unknown]
  - Pyrexia [Recovered/Resolved]
  - Dyspnoea [Unknown]
  - Fatigue [Unknown]
  - Product use issue [Unknown]
  - Inappropriate schedule of product administration [Recovered/Resolved]

NARRATIVE: CASE EVENT DATE: 20220301
